FAERS Safety Report 7508614-7 (Version None)
Quarter: 2011Q2

REPORT INFORMATION
  Report Type: 
  Country: None (occurrence: None)
  Receive Date: 20110527
  Receipt Date: 20110208
  Transmission Date: 20111010
  Serious: No
  Sender: FDA-Public Use
  Company Number: A0913197A

PATIENT
  Age: 44 Year
  Sex: Female
  Weight: 94 kg

DRUGS (5)
  1. REMODULIN [Concomitant]
     Indication: PULMONARY ARTERIAL HYPERTENSION
     Route: 058
     Dates: start: 20110101
  2. FLOLAN [Suspect]
     Dosage: 25NGKM UNKNOWN
     Route: 042
     Dates: start: 20060101, end: 20110101
  3. FLOLAN [Suspect]
     Indication: PULMONARY ARTERIAL HYPERTENSION
     Route: 042
     Dates: start: 20060101, end: 20110101
  4. TREPROSTINIL [Suspect]
     Indication: PULMONARY ARTERIAL HYPERTENSION
     Dates: start: 20100720, end: 20110101
  5. TRACLEER [Concomitant]

REACTIONS (3)
  - DYSPNOEA [None]
  - DEVICE RELATED INFECTION [None]
  - SWELLING [None]
